FAERS Safety Report 22400292 (Version 2)
Quarter: 2023Q2

REPORT INFORMATION
  Report Type: Spontaneous
  Country: JP (occurrence: None)
  Receive Date: 20230602
  Receipt Date: 20230612
  Transmission Date: 20230722
  Serious: Yes (Life-Threatening, Hospitalization, Other)
  Sender: FDA-Public Use
  Company Number: 2023A043307

PATIENT
  Age: 77 Year
  Sex: Male
  Weight: 67 kg

DRUGS (4)
  1. TAGRISSO [Suspect]
     Active Substance: OSIMERTINIB
     Indication: Non-small cell lung cancer
     Dosage: 80 MG
     Route: 048
     Dates: start: 20220816, end: 20220830
  2. TAGRISSO [Suspect]
     Active Substance: OSIMERTINIB
     Indication: Non-small cell lung cancer
     Dosage: 40 MG
     Route: 048
     Dates: start: 20220914, end: 20220926
  3. CANDESARTAN [Concomitant]
     Active Substance: CANDESARTAN
     Indication: Hypertension
  4. EZETIMIBE [Concomitant]
     Active Substance: EZETIMIBE
     Indication: Hyperlipidaemia

REACTIONS (5)
  - Pneumonitis [Recovered/Resolved]
  - Liver disorder [Recovered/Resolved]
  - Dermatitis acneiform [Recovered/Resolved]
  - Blood pressure increased [Unknown]
  - Hyponatraemia [Unknown]

NARRATIVE: CASE EVENT DATE: 20220101
